FAERS Safety Report 9733769 (Version 1)
Quarter: 2013Q4

REPORT INFORMATION
  Report Type: Other
  Country: FR (occurrence: FR)
  Receive Date: 20131205
  Receipt Date: 20131205
  Transmission Date: 20140711
  Serious: Yes (Hospitalization)
  Sender: FDA-Public Use
  Company Number: FR-ENDO PHARMACEUTICALS INC.-IBUP20130016

PATIENT
  Age: 24 Year
  Sex: Female

DRUGS (2)
  1. IBUPROFEN TABLETS [Suspect]
     Indication: CHEST PAIN
     Route: 048
  2. IBUPROFEN TABLETS [Suspect]
     Indication: PYREXIA

REACTIONS (1)
  - Lung abscess [Recovered/Resolved]
